FAERS Safety Report 4807382-7 (Version None)
Quarter: 2005Q4

REPORT INFORMATION
  Report Type: 
  Country: None (occurrence: None)
  Receive Date: 20051024
  Receipt Date: 20050705
  Transmission Date: 20060501
  Serious: Yes (Hospitalization, Disabling)
  Sender: FDA-Public Use
  Company Number: US-MERCK-0507USA00676

PATIENT
  Age: 55 Year
  Sex: Female
  Weight: 68 kg

DRUGS (6)
  1. VIOXX [Suspect]
     Indication: RHEUMATOID ARTHRITIS
     Route: 048
     Dates: start: 20000515, end: 20040930
  2. VIOXX [Suspect]
     Indication: PAIN
     Route: 048
     Dates: start: 20000515, end: 20040930
  3. ZIAC [Concomitant]
     Indication: HYPERTENSION
     Route: 065
  4. NORVASC [Concomitant]
     Indication: HYPERTENSION
     Route: 065
     Dates: start: 20000302
  5. TRIMOX [Concomitant]
     Route: 065
  6. HYDROCODONE BITARTRATE [Concomitant]
     Route: 065

REACTIONS (7)
  - ACUTE CORONARY SYNDROME [None]
  - ACUTE MYOCARDIAL INFARCTION [None]
  - ACUTE PULMONARY OEDEMA [None]
  - CARDIAC FAILURE CONGESTIVE [None]
  - HYPERTENSIVE CRISIS [None]
  - MITRAL VALVE INCOMPETENCE [None]
  - PNEUMONIA [None]
